FAERS Safety Report 4356818-7 (Version None)
Quarter: 2004Q2

REPORT INFORMATION
  Report Type: 
  Country: None (occurrence: None)
  Receive Date: 20040507
  Receipt Date: 20040423
  Transmission Date: 20050107
  Serious: No
  Sender: FDA-Public Use
  Company Number: DPC-2004-00043

PATIENT
  Age: 44 Year
  Sex: Female

DRUGS (5)
  1. EVOXAC [Suspect]
     Dosage: 30 MG (BID), ORAL
     Route: 048
  2. ENBREL (ETANERCEPT) (INJECTION) (ETANERCEPT) [Concomitant]
  3. NEURONTIN [Concomitant]
  4. SOLU-MEDROL (METHYLPREDNISOLONE SODIUM SUCCINATE) (METHYLPREDNISOLONE [Concomitant]
  5. ASA (ACETYLSALICYLIC ACID) (ACETYLSALICYLIC ACID) [Concomitant]

REACTIONS (2)
  - ADRENOCORTICAL INSUFFICIENCY CHRONIC [None]
  - DYSGEUSIA [None]
